FAERS Safety Report 24178265 (Version 1)
Quarter: 2024Q3

REPORT INFORMATION
  Report Type: Spontaneous
  Country: CN (occurrence: CN)
  Receive Date: 20240806
  Receipt Date: 20240806
  Transmission Date: 20241016
  Serious: Yes (Other)
  Sender: CHEPLAPHARM
  Company Number: CN-CHEPLA-2024009947

PATIENT
  Age: 60 Year
  Sex: Male

DRUGS (8)
  1. CAPECITABINE [Suspect]
     Active Substance: CAPECITABINE
     Indication: Gastric cancer stage II
     Dosage: CAP, 2000 MG Q.M. AND 1500 MG Q.N. ORALLY ON DAY 1?14
     Route: 048
     Dates: start: 20210312
  2. CAPECITABINE [Suspect]
     Active Substance: CAPECITABINE
     Indication: Gastric cancer stage II
     Dosage: 6TH COURSE OF CHEMOTHERAPY?CONSISTING ?DAILY DOSE: 3000 MILLIGRAM
     Route: 048
     Dates: start: 20230726
  3. CAPECITABINE [Suspect]
     Active Substance: CAPECITABINE
     Indication: Gastric cancer stage II
     Dosage: TWICE-DAILY REGIMEN OF 1500 MG?ORAL CAP TABLETS ?DAILY DOSE: 3000 MILLIGRAM
     Route: 048
  4. CAPECITABINE [Suspect]
     Active Substance: CAPECITABINE
     Indication: Gastric cancer stage II
     Dosage: BID?DAILY DOSE: 3000 MILLIGRAM
     Route: 048
  5. OXALIPLATIN [Suspect]
     Active Substance: OXALIPLATIN
     Indication: Gastric cancer stage II
     Dosage: OXP, 240 MG FOR INTRAVENOUSLY GUTTAE ON DAY 1
     Route: 042
     Dates: start: 20210312
  6. OXALIPLATIN [Suspect]
     Active Substance: OXALIPLATIN
     Indication: Gastric cancer stage II
     Dosage: 6TH COURSE OF CHEMOTHERAPY?CONSISTING
     Route: 042
     Dates: start: 20210726
  7. OXALIPLATIN [Suspect]
     Active Substance: OXALIPLATIN
     Indication: Gastric cancer stage II
     Route: 042
  8. OXALIPLATIN [Suspect]
     Active Substance: OXALIPLATIN
     Indication: Gastric cancer stage II
     Route: 042

REACTIONS (2)
  - Myelosuppression [Recovering/Resolving]
  - Myelodysplastic syndrome [Unknown]
